FAERS Safety Report 6560967-2 (Version None)
Quarter: 2010Q1

REPORT INFORMATION
  Report Type: 
  Country: None (occurrence: None)
  Receive Date: 20100130
  Receipt Date: 20090930
  Transmission Date: 20100710
  Serious: No
  Sender: FDA-Public Use
  Company Number: US-ABBOTT-09P-163-0600226-00

PATIENT
  Sex: Male
  Weight: 158.9 kg

DRUGS (6)
  1. HUMIRA [Suspect]
     Indication: PSORIASIS
     Dates: start: 20090729
  2. METFORMIN [Concomitant]
     Indication: DRUG USE FOR UNKNOWN INDICATION
  3. ACTOS [Concomitant]
     Indication: DRUG USE FOR UNKNOWN INDICATION
  4. LIPOFEN [Concomitant]
     Indication: DRUG USE FOR UNKNOWN INDICATION
  5. AMLODIPINE [Concomitant]
     Indication: DRUG USE FOR UNKNOWN INDICATION
  6. EFFEXOR [Concomitant]
     Indication: DEPRESSION

REACTIONS (4)
  - DYSPNOEA [None]
  - OEDEMA PERIPHERAL [None]
  - PSORIASIS [None]
  - WEIGHT INCREASED [None]
